FAERS Safety Report 13175808 (Version 2)
Quarter: 2017Q1

REPORT INFORMATION
  Report Type: Spontaneous
  Country: US (occurrence: US)
  Receive Date: 20170201
  Receipt Date: 20170206
  Transmission Date: 20170428
  Serious: Yes (Hospitalization, Other)
  Sender: FDA-Public Use
  Company Number: US-BAYER-2017-019391

PATIENT
  Age: 73 Year
  Sex: Female

DRUGS (3)
  1. AMBRISENTAN [Suspect]
     Active Substance: AMBRISENTAN
     Indication: PRODUCT USED FOR UNKNOWN INDICATION
     Dosage: 10 MG, QD
     Route: 065
     Dates: start: 20161125
  2. ADEMPAS [Suspect]
     Active Substance: RIOCIGUAT
     Indication: PRODUCT USED FOR UNKNOWN INDICATION
     Dosage: UNK
     Route: 065
  3. ADEMPAS [Suspect]
     Active Substance: RIOCIGUAT
     Indication: PRODUCT USED FOR UNKNOWN INDICATION
     Dosage: 2.5 MG, TID
     Route: 065

REACTIONS (13)
  - Nasopharyngitis [None]
  - Joint swelling [None]
  - Blood pressure decreased [None]
  - Peripheral swelling [None]
  - Nausea [Unknown]
  - Dizziness [None]
  - Cough [None]
  - Diarrhoea [None]
  - Pneumonia [None]
  - Musculoskeletal chest pain [None]
  - Malaise [None]
  - Lung disorder [None]
  - Epistaxis [None]

NARRATIVE: CASE EVENT DATE: 20161129
